FAERS Safety Report 4599156-X (Version None)
Quarter: 2005Q1

REPORT INFORMATION
  Report Type: 
  Country: None (occurrence: None)
  Receive Date: 20050303
  Receipt Date: 20050210
  Transmission Date: 20050727
  Serious: Yes (Other)
  Sender: FDA-Public Use
  Company Number: USA040773226

PATIENT
  Age: 74 Year
  Sex: Female
  Weight: 67 kg

DRUGS (20)
  1. FORTEO [Suspect]
     Indication: OSTEOPOROSIS
     Dosage: 20 UG/1 DAY
     Dates: start: 20030101
  2. MORPHINE [Concomitant]
  3. XANAX(ALPRAZOLAM DUM) [Concomitant]
  4. UNSPECIFIED BLOOD PRESSURE MEDICATION [Concomitant]
  5. WE;;BUTRIN (BUPROPION HYDROCHLORIDE) [Concomitant]
  6. TRAZODONE HCL [Concomitant]
  7. NITROSTAT [Concomitant]
  8. MECLIZINE [Concomitant]
  9. LOTENSIN [Concomitant]
  10. TOPROL-XL [Concomitant]
  11. ULTRACET [Concomitant]
  12. AMBIEN [Concomitant]
  13. DETROL LA [Concomitant]
  14. ATIVAN [Concomitant]
  15. ZINC [Concomitant]
  16. VITAMIN CAP [Concomitant]
  17. MIACALCIN [Concomitant]
  18. PROTONIX [Concomitant]
  19. EFFEXOR XR [Concomitant]
  20. ANUSOL-HC (HYDROCORTISONE ACETATE) [Concomitant]

REACTIONS (36)
  - ANXIETY [None]
  - ASTHMA [None]
  - ATROPHY [None]
  - BACK PAIN [None]
  - BLOOD ALKALINE PHOSPHATASE INCREASED [None]
  - BRAIN SCAN ABNORMAL [None]
  - CARDIAC FAILURE CONGESTIVE [None]
  - COLONIC POLYP [None]
  - CONDITION AGGRAVATED [None]
  - CONSTIPATION [None]
  - CONTUSION [None]
  - DEPRESSION [None]
  - DIZZINESS [None]
  - DYSPHAGIA [None]
  - EYE INJURY [None]
  - FALL [None]
  - FATIGUE [None]
  - HAEMORRHOIDAL HAEMORRHAGE [None]
  - HEADACHE [None]
  - INJECTION SITE DISCOMFORT [None]
  - INJECTION SITE IRRITATION [None]
  - JOINT SPRAIN [None]
  - LIMB INJURY [None]
  - MEDICATION ERROR [None]
  - MUSCLE SPASMS [None]
  - NAUSEA [None]
  - NOCTURIA [None]
  - ODYNOPHAGIA [None]
  - OEDEMA PERIPHERAL [None]
  - OESOPHAGEAL STENOSIS [None]
  - PHARMACEUTICAL PRODUCT COMPLAINT [None]
  - POLLAKIURIA [None]
  - PRODUCTIVE COUGH [None]
  - RIB FRACTURE [None]
  - SINUSITIS [None]
  - VISUAL ACUITY REDUCED [None]
